FAERS Safety Report 11204377 (Version 1)
Quarter: 2015Q2

REPORT INFORMATION
  Report Type: Spontaneous
  Country: US (occurrence: US)
  Receive Date: 20150620
  Receipt Date: 20150620
  Transmission Date: 20150821
  Serious: No
  Sender: FDA-Public Use
  Company Number: US-009507513-1506USA003484

PATIENT
  Age: 30 Year
  Sex: Female
  Weight: 62.59 kg

DRUGS (5)
  1. VITAMINS (UNSPECIFIED) [Concomitant]
     Active Substance: VITAMINS
  2. SYNTHROID [Concomitant]
     Active Substance: LEVOTHYROXINE SODIUM
  3. IMPLANON [Suspect]
     Active Substance: ETONOGESTREL
     Indication: CONTRACEPTION
     Dosage: DOSE/FREQUENCY- EVERY 3 YEARS.ROUTE LEFT ARM
     Route: 059
     Dates: start: 20130125
  4. IMPLANON [Suspect]
     Active Substance: ETONOGESTREL
     Indication: MUSCLE SPASMS
  5. IMPLANON [Suspect]
     Active Substance: ETONOGESTREL
     Indication: MENSTRUAL CYCLE MANAGEMENT

REACTIONS (3)
  - Menorrhagia [Unknown]
  - Hypoaesthesia [Unknown]
  - Abdominal distension [Unknown]

NARRATIVE: CASE EVENT DATE: 201303
